FAERS Safety Report 11692376 (Version 1)
Quarter: 2015Q4

REPORT INFORMATION
  Report Type: Spontaneous
  Country: US (occurrence: None)
  Receive Date: 20151102
  Receipt Date: 20151102
  Transmission Date: 20160304
  Serious: No
  Sender: FDA-Public Use
  Company Number: None

PATIENT
  Age: 46 Year
  Sex: Male
  Weight: 94.7 kg

DRUGS (1)
  1. CEFUROXIME. [Suspect]
     Active Substance: CEFUROXIME
     Indication: BRONCHITIS
     Route: 048
     Dates: start: 20150909, end: 20150916

REACTIONS (8)
  - Melaena [None]
  - Abdominal distension [None]
  - Faeces discoloured [None]
  - Therapy cessation [None]
  - Muscle spasms [None]
  - Constipation [None]
  - Intentional product use issue [None]
  - Abdominal pain [None]

NARRATIVE: CASE EVENT DATE: 20150909
